FAERS Safety Report 10687893 (Version 2)
Quarter: 2015Q1

REPORT INFORMATION
  Report Type: Report from Study
  Country: CA (occurrence: CA)
  Receive Date: 20150102
  Receipt Date: 20150102
  Transmission Date: 20150720
  Serious: Yes (Death, Hospitalization)
  Sender: FDA-Public Use
  Company Number: PHHY2014CA154867

PATIENT
  Sex: Male

DRUGS (3)
  1. SANDOSTATIN [Suspect]
     Active Substance: OCTREOTIDE ACETATE
     Indication: GASTROINTESTINAL ANGIODYSPLASIA
     Dosage: 100 UG, BID FOR 2 WEEKS
     Route: 058
     Dates: start: 20141121
  2. SANDOSTATIN [Suspect]
     Active Substance: OCTREOTIDE ACETATE
     Dosage: UNK
     Route: 042
     Dates: start: 201411
  3. SANDOSTATIN LAR DEPOT [Suspect]
     Active Substance: OCTREOTIDE ACETATE
     Indication: GASTROINTESTINAL ANGIODYSPLASIA
     Dosage: 20 MG, QMO
     Route: 030
     Dates: start: 20141205, end: 20141205

REACTIONS (6)
  - Injection site warmth [Unknown]
  - Haematemesis [Recovering/Resolving]
  - Injection site pain [Unknown]
  - Gastrointestinal angiodysplasia [Fatal]
  - Faeces discoloured [Recovering/Resolving]
  - Product use issue [Unknown]
